FAERS Safety Report 9519206 (Version 3)
Quarter: 2013Q4

REPORT INFORMATION
  Report Type: Spontaneous
  Country: US (occurrence: US)
  Receive Date: 20130912
  Receipt Date: 20131026
  Transmission Date: 20140711
  Serious: No
  Sender: FDA-Public Use
  Company Number: US-009507513-1309USA002759

PATIENT
  Age: 32 Year
  Sex: Female
  Weight: 92.52 kg

DRUGS (2)
  1. NEXPLANON [Suspect]
     Indication: CONTRACEPTION
     Dosage: LEFT ARM
     Dates: start: 20130711, end: 20130711
  2. NEXPLANON [Suspect]
     Dosage: RIGHT ARM
     Route: 059
     Dates: start: 20130925

REACTIONS (4)
  - Implant site pain [Recovered/Resolved]
  - Implant site hypoaesthesia [Recovered/Resolved]
  - Implant site paraesthesia [Recovered/Resolved]
  - Device deployment issue [Recovered/Resolved]
